FAERS Safety Report 8842876 (Version 2)
Quarter: 2013Q1

REPORT INFORMATION
  Report Type: Spontaneous
  Country: US (occurrence: US)
  Receive Date: 20121016
  Receipt Date: 20130108
  Transmission Date: 20140127
  Serious: Yes (Death, Hospitalization)
  Sender: FDA-Public Use
  Company Number: US-ACTELION-A-US2012-72783

PATIENT
  Age: 3 Month
  Sex: Female

DRUGS (6)
  1. TRACLEER [Suspect]
     Indication: PULMONARY ARTERIAL HYPERTENSION
     Dosage: 15.625 MG, Q12HRS
     Route: 048
     Dates: start: 20120902, end: 20121004
  2. SILDENAFIL [Concomitant]
     Indication: PULMONARY ARTERIAL HYPERTENSION
  3. BUMEX [Concomitant]
  4. LASIX [Concomitant]
  5. MILRINONE [Concomitant]
  6. ENALAPRIL [Concomitant]

REACTIONS (2)
  - Multi-organ failure [Fatal]
  - Renal failure [None]
